FAERS Safety Report 12192010 (Version 9)
Quarter: 2017Q1

REPORT INFORMATION
  Report Type: Report from Study
  Country: US (occurrence: US)
  Receive Date: 20160318
  Receipt Date: 20170324
  Transmission Date: 20170428
  Serious: Yes (Other)
  Sender: FDA-Public Use
  Company Number: US-SA-2016SA053445

PATIENT
  Age: 60 Year
  Sex: Female

DRUGS (3)
  1. LEMTRADA [Suspect]
     Active Substance: ALEMTUZUMAB
     Indication: MULTIPLE SCLEROSIS
     Route: 041
     Dates: start: 20160216, end: 20160219
  2. TIZANIDINE. [Concomitant]
     Active Substance: TIZANIDINE
     Route: 048
  3. NEURONTIN [Concomitant]
     Active Substance: GABAPENTIN

REACTIONS (28)
  - Precancerous skin lesion [Unknown]
  - Gingival pain [Unknown]
  - Pain [Unknown]
  - Cough [Recovered/Resolved]
  - Abasia [Unknown]
  - Condition aggravated [Not Recovered/Not Resolved]
  - Impaired driving ability [Not Recovered/Not Resolved]
  - Temperature intolerance [Not Recovered/Not Resolved]
  - Nasopharyngitis [Unknown]
  - Movement disorder [Unknown]
  - Rosacea [Unknown]
  - Bedridden [Recovered/Resolved]
  - General physical health deterioration [Not Recovered/Not Resolved]
  - Feeling cold [Not Recovered/Not Resolved]
  - Fatigue [Not Recovered/Not Resolved]
  - Bladder disorder [Unknown]
  - Skin cancer [Not Recovered/Not Resolved]
  - Epistaxis [Recovered/Resolved]
  - Gingival erythema [Unknown]
  - Dry skin [Unknown]
  - Oropharyngeal pain [Recovered/Resolved]
  - Balance disorder [Not Recovered/Not Resolved]
  - Urinary incontinence [Unknown]
  - Malaise [Unknown]
  - Oral herpes [Unknown]
  - Insomnia [Unknown]
  - Muscle spasms [Unknown]
  - Blood pressure fluctuation [Not Recovered/Not Resolved]

NARRATIVE: CASE EVENT DATE: 2016
